FAERS Safety Report 18590987 (Version 1)
Quarter: 2020Q4

REPORT INFORMATION
  Report Type: Not Available
  Country: None (occurrence: None)
  Receive Date: 20201208
  Receipt Date: 20201208
  Transmission Date: 20210114
  Serious: No
  Sender: FDA-Public Use
  Company Number: US-AKORN-157342

PATIENT
  Age: 15 Month
  Sex: Female

DRUGS (1)
  1. LEVALBUTEROL HCL INHALATION SOLUTION [Suspect]
     Active Substance: LEVALBUTEROL HYDROCHLORIDE

REACTIONS (1)
  - Dyspnoea [Recovered/Resolved]

NARRATIVE: CASE EVENT DATE: 20201122
